FAERS Safety Report 21830404 (Version 2)
Quarter: 2023Q1

REPORT INFORMATION
  Report Type: Report from Study
  Country: US (occurrence: US)
  Receive Date: 20230106
  Receipt Date: 20230321
  Transmission Date: 20230417
  Serious: No
  Sender: FDA-Public Use
  Company Number: US-ABBVIE-22K-163-4399471-00

PATIENT
  Sex: Female
  Weight: 72.574 kg

DRUGS (3)
  1. IMBRUVICA [Suspect]
     Active Substance: IBRUTINIB
     Indication: Chronic lymphocytic leukaemia
     Route: 048
     Dates: start: 201712
  2. IMBRUVICA [Suspect]
     Active Substance: IBRUTINIB
     Indication: Chronic lymphocytic leukaemia
     Dosage: FORM STRENGTH: 140 MILLIGRAM
     Route: 048
     Dates: start: 2015
  3. CLONAZEPAM [Concomitant]
     Active Substance: CLONAZEPAM
     Indication: Product used for unknown indication

REACTIONS (8)
  - Bone pain [Unknown]
  - Sinusitis [Unknown]
  - Arthritis [Unknown]
  - Anxiety [Recovered/Resolved]
  - Heart rate abnormal [Unknown]
  - Haemorrhagic diathesis [Unknown]
  - Contusion [Unknown]
  - Unevaluable event [Unknown]

NARRATIVE: CASE EVENT DATE: 20220101
